FAERS Safety Report 16261539 (Version 1)
Quarter: 2019Q2

REPORT INFORMATION
  Report Type: Spontaneous
  Country: US (occurrence: US)
  Receive Date: 20190501
  Receipt Date: 20190501
  Transmission Date: 20190711
  Serious: No
  Sender: FDA-Public Use
  Company Number: US-SA-2019SA073095

PATIENT
  Age: 30 Year
  Sex: Female
  Weight: 71 kg

DRUGS (9)
  1. LUMIZYME [Suspect]
     Active Substance: ALGLUCOSIDASE ALFA
     Indication: GLYCOGEN STORAGE DISEASE TYPE II
     Dosage: 21.1 MG/KG, QOW
     Route: 041
  2. STERILE WATER [Concomitant]
     Active Substance: WATER
     Dosage: 300 ML
     Route: 042
  3. SODIUM CHLORIDE. [Concomitant]
     Active Substance: SODIUM CHLORIDE
     Dosage: 0.9%
     Route: 042
     Dates: start: 20181105
  4. ZOLOFT [Concomitant]
     Active Substance: SERTRALINE HYDROCHLORIDE
     Dosage: 1 TAB QD
     Route: 048
     Dates: start: 20181024
  5. MULTIVITAMIN [VITAMINS NOS] [Concomitant]
     Dosage: 1 TAB, QD
     Route: 048
     Dates: start: 20181024
  6. NORMAL SALINE [Concomitant]
     Active Substance: SODIUM CHLORIDE
     Dosage: 0.9%
     Route: 042
     Dates: start: 20181105
  7. EPINEPHRINE. [Concomitant]
     Active Substance: EPINEPHRINE
     Indication: ANAPHYLACTIC REACTION
     Dosage: 0.3 MG, PRN
     Route: 030
     Dates: start: 20181105
  8. APRI [Concomitant]
     Active Substance: DESOGESTREL\ETHINYL ESTRADIOL
     Dosage: UNK UNK, QD
     Route: 048
     Dates: start: 20181024
  9. DIPHENHYDRAMINE. [Concomitant]
     Active Substance: DIPHENHYDRAMINE
     Indication: ANAPHYLACTIC REACTION
     Dosage: 25 MG, QD
     Route: 048
     Dates: start: 20181105

REACTIONS (1)
  - Exposure during pregnancy [Unknown]
